FAERS Safety Report 7985120-7 (Version None)
Quarter: 2011Q4

REPORT INFORMATION
  Report Type: 
  Country: None (occurrence: None)
  Receive Date: 20111216
  Receipt Date: 20111210
  Transmission Date: 20120403
  Serious: Yes (Death, Other)
  Sender: FDA-Public Use
  Company Number: PHHY2011US108467

PATIENT
  Age: 31 Year
  Sex: Female

DRUGS (1)
  1. SANDOSTATIN [Suspect]
     Dosage: 50 UG, TID
     Route: 058
     Dates: start: 20071201, end: 20101001

REACTIONS (2)
  - CHOLELITHIASIS [None]
  - SEPSIS [None]
